FAERS Safety Report 26064119 (Version 1)
Quarter: 2025Q4

REPORT INFORMATION
  Report Type: Spontaneous
  Country: US (occurrence: US)
  Receive Date: 20251119
  Receipt Date: 20251119
  Transmission Date: 20260117
  Serious: Yes (Hospitalization)
  Sender: MYLAN
  Company Number: US-MYLANLABS-2025M1097845

PATIENT
  Age: 30 Year
  Sex: Female

DRUGS (20)
  1. FAMOTIDINE [Suspect]
     Active Substance: FAMOTIDINE
     Indication: Nausea
     Dosage: 20 MILLIGRAM, BID
  2. FAMOTIDINE [Suspect]
     Active Substance: FAMOTIDINE
     Indication: Vomiting
     Dosage: 20 MILLIGRAM, BID
     Route: 065
  3. FAMOTIDINE [Suspect]
     Active Substance: FAMOTIDINE
     Dosage: 20 MILLIGRAM, BID
     Route: 065
  4. FAMOTIDINE [Suspect]
     Active Substance: FAMOTIDINE
     Dosage: 20 MILLIGRAM, BID
  5. MIRTAZAPINE [Suspect]
     Active Substance: MIRTAZAPINE
     Indication: Nausea
     Dosage: DISINTEGRATING TABLET
  6. MIRTAZAPINE [Suspect]
     Active Substance: MIRTAZAPINE
     Indication: Vomiting
     Dosage: DISINTEGRATING TABLET
     Route: 048
  7. MIRTAZAPINE [Suspect]
     Active Substance: MIRTAZAPINE
     Dosage: DISINTEGRATING TABLET
     Route: 048
  8. MIRTAZAPINE [Suspect]
     Active Substance: MIRTAZAPINE
     Dosage: DISINTEGRATING TABLET
  9. METOCLOPRAMIDE HYDROCHLORIDE [Suspect]
     Active Substance: METOCLOPRAMIDE HYDROCHLORIDE
     Indication: Nausea
     Dosage: 10 MILLIGRAM, Q6H
  10. METOCLOPRAMIDE HYDROCHLORIDE [Suspect]
     Active Substance: METOCLOPRAMIDE HYDROCHLORIDE
     Indication: Vomiting
     Dosage: 10 MILLIGRAM, Q6H
     Route: 065
  11. METOCLOPRAMIDE HYDROCHLORIDE [Suspect]
     Active Substance: METOCLOPRAMIDE HYDROCHLORIDE
     Dosage: 10 MILLIGRAM, Q6H
     Route: 065
  12. METOCLOPRAMIDE HYDROCHLORIDE [Suspect]
     Active Substance: METOCLOPRAMIDE HYDROCHLORIDE
     Dosage: 10 MILLIGRAM, Q6H
  13. ONDANSETRON [Suspect]
     Active Substance: ONDANSETRON
     Indication: Nausea
     Dosage: 4 MILLIGRAM, Q6H, DISINTEGRATING TABLET
  14. ONDANSETRON [Suspect]
     Active Substance: ONDANSETRON
     Indication: Vomiting
     Dosage: 4 MILLIGRAM, Q6H, DISINTEGRATING TABLET
  15. ONDANSETRON [Suspect]
     Active Substance: ONDANSETRON
     Dosage: 4 MILLIGRAM, Q6H, DISINTEGRATING TABLET
     Route: 048
  16. ONDANSETRON [Suspect]
     Active Substance: ONDANSETRON
     Dosage: 4 MILLIGRAM, Q6H, DISINTEGRATING TABLET
     Route: 048
  17. ONDANSETRON [Suspect]
     Active Substance: ONDANSETRON
     Dosage: UNK, DOSES WAS REDUCED
  18. ONDANSETRON [Suspect]
     Active Substance: ONDANSETRON
     Dosage: UNK, DOSES WAS REDUCED
  19. ONDANSETRON [Suspect]
     Active Substance: ONDANSETRON
     Dosage: UNK, DOSES WAS REDUCED
     Route: 065
  20. ONDANSETRON [Suspect]
     Active Substance: ONDANSETRON
     Dosage: UNK, DOSES WAS REDUCED
     Route: 065

REACTIONS (3)
  - Drug ineffective [Unknown]
  - Maternal exposure during pregnancy [Unknown]
  - Off label use [Unknown]
